FAERS Safety Report 23109013 (Version 1)
Quarter: 2023Q4

REPORT INFORMATION
  Report Type: Spontaneous
  Country: US (occurrence: None)
  Receive Date: 20231024
  Receipt Date: 20231024
  Transmission Date: 20240110
  Serious: Yes (Hospitalization)
  Sender: FDA-Public Use
  Company Number: None

PATIENT
  Age: 37 Year
  Sex: Male
  Weight: 98.8 kg

DRUGS (1)
  1. APIXABAN [Suspect]
     Active Substance: APIXABAN
     Dosage: FREQUENCY : TWICE A DAY;?
     Route: 048
     Dates: start: 20230131, end: 20230207

REACTIONS (11)
  - Angioedema [None]
  - Myalgia [None]
  - Rash [None]
  - Pain [None]
  - Pyrexia [None]
  - Chills [None]
  - Hyperhidrosis [None]
  - Dyspnoea [None]
  - Joint swelling [None]
  - Arthralgia [None]
  - Erythema [None]

NARRATIVE: CASE EVENT DATE: 20230207
